FAERS Safety Report 16895503 (Version 1)
Quarter: 2019Q4

REPORT INFORMATION
  Report Type: Other
  Country: CA (occurrence: CA)
  Receive Date: 20191008
  Receipt Date: 20191008
  Transmission Date: 20200122
  Serious: Yes (Other)
  Sender: FDA-Public Use
  Company Number: CA-PFIZER INC-2019426965

PATIENT
  Age: 53 Year
  Sex: Male

DRUGS (1)
  1. DOXORUBICIN HCL [Suspect]
     Active Substance: DOXORUBICIN HYDROCHLORIDE
     Indication: OSTEITIS DEFORMANS
     Dosage: 50 MG/M2, UNK

REACTIONS (4)
  - Impaired work ability [Unknown]
  - Febrile neutropenia [Unknown]
  - Off label use [Unknown]
  - Product use in unapproved indication [Unknown]
